FAERS Safety Report 6836364-9 (Version None)
Quarter: 2010Q3

REPORT INFORMATION
  Report Type: 
  Country: None (occurrence: None)
  Receive Date: 20100712
  Receipt Date: 20100712
  Transmission Date: 20110219
  Serious: Yes (Hospitalization)
  Sender: FDA-Public Use
  Company Number: None

PATIENT
  Age: 78 Year
  Sex: Male
  Weight: 70.3075 kg

DRUGS (11)
  1. SLO-NIACIN 500MG UPSHER-SMITH [Suspect]
     Indication: DYSLIPIDAEMIA
     Dates: start: 20100326, end: 20100416
  2. PLAVIX [Concomitant]
  3. FLUTICASONE PROPIONATE [Concomitant]
  4. NITROGLYCERIN [Concomitant]
  5. CHOLEST [Concomitant]
  6. SIMVASTATIN [Concomitant]
  7. ASPIRIN [Concomitant]
  8. CHOLECALCIFEROL [Concomitant]
  9. VITAMIN B-12 [Concomitant]
  10. METOPROLOL [Concomitant]
  11. TRIAMCINOLONE ACETONIDE TOPICAL OINTMENT [Concomitant]

REACTIONS (16)
  - APHASIA [None]
  - CEREBRAL ATROPHY [None]
  - DISEASE PROGRESSION [None]
  - DISTURBANCE IN ATTENTION [None]
  - DYSARTHRIA [None]
  - FEELING ABNORMAL [None]
  - GASTROOESOPHAGEAL REFLUX DISEASE [None]
  - HYPERTENSION [None]
  - HYPOACUSIS [None]
  - HYPOAESTHESIA [None]
  - INSOMNIA [None]
  - NAUSEA [None]
  - PAIN [None]
  - PARAESTHESIA [None]
  - PARAESTHESIA ORAL [None]
  - VISUAL IMPAIRMENT [None]
